FAERS Safety Report 4892206-2 (Version None)
Quarter: 2006Q1

REPORT INFORMATION
  Report Type: 
  Country: None (occurrence: None)
  Receive Date: 20060125
  Receipt Date: 20060125
  Transmission Date: 20060701
  Serious: Yes (Hospitalization)
  Sender: FDA-Public Use
  Company Number: None

PATIENT
  Sex: Female

DRUGS (4)
  1. DILTIAZEM HCL [Suspect]
     Dosage: 240MG, QD, ORAL
     Route: 048
  2. CLONIDINE [Suspect]
     Dosage: 0.1MG, BID, ORAL
     Route: 048
  3. ALBUTEROL [Concomitant]
  4. FUROSEMIDE [Concomitant]

REACTIONS (5)
  - DYSPNOEA [None]
  - MALAISE [None]
  - SOMNOLENCE [None]
  - THERAPY NON-RESPONDER [None]
  - TREATMENT NONCOMPLIANCE [None]
